FAERS Safety Report 13465772 (Version 1)
Quarter: 2017Q2

REPORT INFORMATION
  Report Type: Spontaneous
  Country: IT (occurrence: IT)
  Receive Date: 20170421
  Receipt Date: 20170421
  Transmission Date: 20170830
  Serious: Yes (Other)
  Sender: FDA-Public Use
  Company Number: IT-WEST-WARD PHARMACEUTICALS CORP.-IT-H14001-17-01169

PATIENT
  Age: 59 Year
  Sex: Female

DRUGS (1)
  1. IRINOTECAN HIKMA [Suspect]
     Active Substance: IRINOTECAN
     Indication: PANCREATIC CARCINOMA
     Route: 042
     Dates: start: 20170406

REACTIONS (2)
  - Swollen tongue [Recovering/Resolving]
  - Dysphagia [Recovering/Resolving]

NARRATIVE: CASE EVENT DATE: 20170406
